FAERS Safety Report 10428946 (Version 2)
Quarter: 2015Q2

REPORT INFORMATION
  Report Type: Report from Study
  Country: JP (occurrence: JP)
  Receive Date: 20140904
  Receipt Date: 20150630
  Transmission Date: 20150821
  Serious: Yes (Hospitalization)
  Sender: FDA-Public Use
  Company Number: JP-009507513-1409JPN000536

PATIENT
  Age: 66 Year
  Sex: Male
  Weight: 63 kg

DRUGS (12)
  1. LOXONIN [Concomitant]
     Active Substance: LOXOPROFEN SODIUM
     Indication: PROPHYLAXIS
     Dosage: 120 MG, FORMULATION POR (SEPERATE NO. 2, INTERVAL 1 DAY)
     Route: 048
     Dates: start: 20130208, end: 20130823
  2. EURAX [Concomitant]
     Active Substance: CROTAMITON
     Indication: INJECTION SITE PRURITUS
     Dosage: PROPER DOSE, BID
     Route: 061
     Dates: start: 20130412, end: 20130823
  3. LANTUS [Concomitant]
     Active Substance: INSULIN GLARGINE
     Indication: DIABETES MELLITUS
     Dosage: DAILY DOSE UNKNOWN, QD
     Route: 058
     Dates: end: 20130904
  4. LIVACT [Concomitant]
     Active Substance: AMINO ACIDS
     Indication: HEPATIC CIRRHOSIS
     Dosage: 1 DF, TID, FORMULATION POR (SEPERATENO.3, INTERVAL 1 DAY)
     Route: 048
     Dates: start: 20110625
  5. PEGINTRON [Suspect]
     Active Substance: PEGINTERFERON ALFA-2B
     Dosage: 60 MICROGRAM, QW
     Route: 058
     Dates: start: 20130412, end: 20130502
  6. PEGINTRON [Suspect]
     Active Substance: PEGINTERFERON ALFA-2B
     Dosage: 70 MICROGRAM, QW
     Route: 058
     Dates: start: 20130510, end: 20130816
  7. NEXIUM [Concomitant]
     Active Substance: ESOMEPRAZOLE MAGNESIUM
     Indication: GASTROOESOPHAGEAL REFLUX DISEASE
     Dosage: 20 MG, QD, FORMULATION POR
     Route: 048
     Dates: start: 20140214
  8. REBETOL [Suspect]
     Active Substance: RIBAVIRIN
     Indication: HEPATIC CIRRHOSIS
     Dosage: 600 MG, QD
     Route: 048
     Dates: start: 20130208, end: 20130826
  9. REBAMIPIDE [Concomitant]
     Active Substance: REBAMIPIDE
     Indication: PROPHYLAXIS
     Dosage: 100 MG , BID, FORMULATION POR (SEPERTAE NO: 2 INTERVAL: 1 DAY)
     Route: 048
     Dates: start: 20130208, end: 20130823
  10. PEGINTRON [Suspect]
     Active Substance: PEGINTERFERON ALFA-2B
     Dosage: 50 MICROGRAM, QW
     Route: 058
     Dates: start: 20130823, end: 20130823
  11. HUMALOG [Concomitant]
     Active Substance: INSULIN LISPRO
     Indication: DIABETES MELLITUS
     Dosage: DAILY DOSE UNKNOWN, TID
     Route: 058
     Dates: start: 201206, end: 20130904
  12. PEGINTRON [Suspect]
     Active Substance: PEGINTERFERON ALFA-2B
     Indication: HEPATIC CIRRHOSIS
     Dosage: 70 MICROGRAM, QW
     Route: 058
     Dates: start: 20130208, end: 20130405

REACTIONS (10)
  - Decreased appetite [Recovering/Resolving]
  - Hepatocellular carcinoma [Recovering/Resolving]
  - Gastritis [Recovered/Resolved]
  - Alanine aminotransferase increased [Recovered/Resolved]
  - Dysgeusia [Recovered/Resolved]
  - Weight decreased [Not Recovered/Not Resolved]
  - Injection site rash [Recovered/Resolved]
  - Anaemia [Recovered/Resolved]
  - Dehydration [Recovered/Resolved]
  - Aspartate aminotransferase increased [Recovered/Resolved]

NARRATIVE: CASE EVENT DATE: 20130412
